FAERS Safety Report 7964857-X (Version None)
Quarter: 2011Q4

REPORT INFORMATION
  Report Type: 
  Country: None (occurrence: None)
  Receive Date: 20111208
  Receipt Date: 20111129
  Transmission Date: 20120403
  Serious: Yes (Other)
  Sender: FDA-Public Use
  Company Number: PHHY2011BR105274

PATIENT
  Sex: Male

DRUGS (2)
  1. E-SUSTAPE [Concomitant]
  2. DIOVAN [Suspect]
     Dosage: 80 MG, UNK

REACTIONS (2)
  - CARDIAC DISORDER [None]
  - DIABETES MELLITUS [None]
